FAERS Safety Report 19642464 (Version 1)
Quarter: 2021Q3

REPORT INFORMATION
  Report Type: Spontaneous
  Country: FR (occurrence: FR)
  Receive Date: 20210731
  Receipt Date: 20210731
  Transmission Date: 20211014
  Serious: Yes (Hospitalization)
  Sender: FDA-Public Use
  Company Number: FR-ACCORD-233496

PATIENT
  Age: 66 Year
  Sex: Female

DRUGS (1)
  1. ONDANSETRON ACCORD [Suspect]
     Active Substance: ONDANSETRON
     Indication: PROPHYLAXIS OF NAUSEA AND VOMITING
     Dosage: 2 MG/ML, SOLUTION INJECTABLE
     Route: 042
     Dates: start: 20201210, end: 20201210

REACTIONS (3)
  - Anaphylactic reaction [Recovered/Resolved]
  - Haemolytic anaemia [Recovered/Resolved]
  - Product administration error [Unknown]

NARRATIVE: CASE EVENT DATE: 202012
